FAERS Safety Report 4743001-6 (Version None)
Quarter: 2005Q3

REPORT INFORMATION
  Report Type: 
  Country: None (occurrence: None)
  Receive Date: 20050811
  Receipt Date: 20050728
  Transmission Date: 20060218
  Serious: Yes (Hospitalization, Other)
  Sender: FDA-Public Use
  Company Number: 2005103257

PATIENT
  Age: 32 Year
  Sex: Female

DRUGS (4)
  1. CELEBREX [Suspect]
     Indication: CONNECTIVE TISSUE DISORDER
     Dosage: 200 MG (200 MG, 1 IN 1D), ORAL
     Route: 048
     Dates: start: 20050705, end: 20050708
  2. LONOXIN (LOXOPROFEN) [Concomitant]
  3. ALL OTHER THERAPEUTIC PRODUCTS (ALL OTHER THERAPEUTIC PRODUCTS) [Concomitant]
  4. GLUCOSAMINE (GLUCOSAMINE) [Concomitant]

REACTIONS (9)
  - BLOOD CREATINE PHOSPHOKINASE INCREASED [None]
  - BLOOD CREATINE PHOSPHOKINASE MB INCREASED [None]
  - BLOOD LACTATE DEHYDROGENASE INCREASED [None]
  - CONNECTIVE TISSUE DISORDER [None]
  - DIARRHOEA [None]
  - MUSCULAR WEAKNESS [None]
  - OEDEMA [None]
  - PYREXIA [None]
  - RASH [None]
